FAERS Safety Report 10136168 (Version 2)
Quarter: 2014Q2

REPORT INFORMATION
  Report Type: Spontaneous
  Country: JP (occurrence: JP)
  Receive Date: 20140429
  Receipt Date: 20140512
  Transmission Date: 20141212
  Serious: Yes (Other)
  Sender: FDA-Public Use
  Company Number: JP-ROCHE-1387255

PATIENT
  Age: 79 Year
  Sex: Female

DRUGS (3)
  1. BONVIVA [Suspect]
     Indication: PRODUCT USED FOR UNKNOWN INDICATION
     Dosage: UNCERTAIN DOSAGE AND THREE TIME ADMINISTERING
     Route: 042
  2. ALFAROL [Concomitant]
     Dosage: DOSAGE IS UNCERTAIN.
     Route: 048
  3. DIOVAN [Concomitant]
     Dosage: DOSAGE IS UNCERTAIN.
     Route: 065

REACTIONS (1)
  - Angle closure glaucoma [Recovering/Resolving]
